FAERS Safety Report 12266273 (Version 1)
Quarter: 2016Q2

REPORT INFORMATION
  Report Type: Spontaneous
  Country: US (occurrence: None)
  Receive Date: 20160413
  Receipt Date: 20160413
  Transmission Date: 20160815
  Serious: Yes (Disabling)
  Sender: FDA-Public Use
  Company Number: None

PATIENT
  Age: 39 Year
  Sex: Male
  Weight: 68.04 kg

DRUGS (1)
  1. OLD SPICE SWEAT DEFENSE PURE SPORT PLUS [Suspect]
     Active Substance: ALUMINUM ZIRCONIUM TRICHLOROHYDREX GLY
     Indication: HYPERHIDROSIS
     Dosage: ONCE A DAY APPLIED TO A SURFACE, USUALLY THE SKIN
     Route: 061

REACTIONS (1)
  - Application site rash [None]

NARRATIVE: CASE EVENT DATE: 20160410
